FAERS Safety Report 4729914-X (Version None)
Quarter: 2005Q3

REPORT INFORMATION
  Report Type: 
  Country: None (occurrence: None)
  Receive Date: 20050728
  Receipt Date: 20050714
  Transmission Date: 20060218
  Serious: Yes (Hospitalization)
  Sender: FDA-Public Use
  Company Number: CA-2005-004606

PATIENT
  Age: 60 Year
  Sex: Male
  Weight: 104 kg

DRUGS (1)
  1. BETASERON [Suspect]
     Indication: SECONDARY PROGRESSIVE MULTIPLE SCLEROSIS
     Dosage: 8 MIU, EVERY 2D, SUBCUTANEOUS
     Route: 058
     Dates: start: 19991019, end: 20050329

REACTIONS (6)
  - BLUE TOE SYNDROME [None]
  - IMMUNE SYSTEM DISORDER [None]
  - IMPAIRED HEALING [None]
  - OEDEMA PERIPHERAL [None]
  - SKIN ULCER [None]
  - THROMBOSIS [None]
